FAERS Safety Report 9281601 (Version 3)
Quarter: 2014Q1

REPORT INFORMATION
  Report Type: Report from Study
  Country: DE (occurrence: DE)
  Receive Date: 20130509
  Receipt Date: 20140311
  Transmission Date: 20141002
  Serious: Yes (Other)
  Sender: FDA-Public Use
  Company Number: DE-US-EMD SERONO, INC.-7207669

PATIENT
  Sex: Male
  Weight: 30 kg

DRUGS (3)
  1. SAIZEN [Suspect]
     Indication: GROWTH HORMONE DEFICIENCY
     Route: 058
     Dates: start: 20120220
  2. SAIZEN [Suspect]
     Route: 058
     Dates: end: 20130423
  3. SAIZEN [Suspect]
     Route: 058
     Dates: start: 20130501

REACTIONS (1)
  - Arthritis [Recovered/Resolved]
